FAERS Safety Report 11328611 (Version 1)
Quarter: 2015Q3

REPORT INFORMATION
  Report Type: Spontaneous
  Country: US (occurrence: US)
  Receive Date: 20150731
  Receipt Date: 20150731
  Transmission Date: 20151125
  Serious: Yes (Other)
  Sender: FDA-Public Use
  Company Number: US-TARO-2015TAR00699

PATIENT
  Age: 84 Year
  Sex: Female
  Weight: 67.57 kg

DRUGS (5)
  1. METOPROLOL XL [Concomitant]
     Active Substance: METOPROLOL
     Dosage: 50 MG, 1X/DAY
  2. TOPICORT [Suspect]
     Active Substance: DESOXIMETASONE
     Indication: PSORIASIS
     Dosage: UNK UNK, 1X/DAY
     Route: 061
     Dates: start: 201507
  3. GLIPIZIDE. [Concomitant]
     Active Substance: GLIPIZIDE
     Dosage: 5 MG, 1X/DAY
  4. CLONAZEPAM. [Concomitant]
     Active Substance: CLONAZEPAM
     Dosage: 0.5 MG, 1X/DAY
  5. METFORMIN HYDROCHLORIDE. [Concomitant]
     Active Substance: METFORMIN HYDROCHLORIDE
     Dosage: 1000 MG, 1X/DAY

REACTIONS (6)
  - Musculoskeletal discomfort [Not Recovered/Not Resolved]
  - Drug ineffective [Not Recovered/Not Resolved]
  - Inappropriate schedule of drug administration [Not Recovered/Not Resolved]
  - Headache [Not Recovered/Not Resolved]
  - Blood pressure increased [Recovering/Resolving]
  - Insomnia [Not Recovered/Not Resolved]

NARRATIVE: CASE EVENT DATE: 201507
